FAERS Safety Report 7562487-5 (Version None)
Quarter: 2011Q2

REPORT INFORMATION
  Report Type: 
  Country: None (occurrence: None)
  Receive Date: 20110622
  Receipt Date: 20110620
  Transmission Date: 20111010
  Serious: Yes (Death)
  Sender: FDA-Public Use
  Company Number: US-AMGEN-USASP2011014981

PATIENT
  Age: 68 Year
  Sex: Female
  Weight: 74.376 kg

DRUGS (5)
  1. LEVOTHYROXINE SODIUM [Concomitant]
     Dosage: 50 A?G, UNK
  2. DIOVAN [Concomitant]
     Dosage: 40 MG, UNK
  3. NPLATE [Suspect]
     Indication: IDIOPATHIC THROMBOCYTOPENIC PURPURA
     Dosage: 6 A?G/KG, QWK
     Route: 058
     Dates: start: 20100624, end: 20101014
  4. ENALAPRIL MALEATE [Concomitant]
     Dosage: 2.5 MG, UNK
  5. PREDNISONE [Concomitant]
     Dosage: 50 MG, UNK

REACTIONS (2)
  - CARDIAC ARREST [None]
  - BRONCHITIS [None]
